FAERS Safety Report 8847614 (Version 1)
Quarter: 2012Q4

REPORT INFORMATION
  Report Type: 
  Country: CA (occurrence: CA)
  Receive Date: 20121018
  Receipt Date: 20121018
  Transmission Date: 20130627
  Serious: Yes (Life-Threatening, Hospitalization)
  Sender: FDA-Public Use
  Company Number: CA-ELI_LILLY_AND_COMPANY-CA201210002066

PATIENT
  Age: 28 Year
  Sex: Female
  Weight: 100 kg

DRUGS (12)
  1. ZYPREXA ZYDIS [Suspect]
     Dosage: 5 mg, qd
     Route: 048
     Dates: start: 2005
  2. ZYPREXA ZYDIS [Suspect]
     Dosage: 20 mg, qd
     Route: 048
  3. ACETAMINOPHEN [Concomitant]
  4. ATIVAN [Concomitant]
  5. COLACE [Concomitant]
  6. EPIVAL [Concomitant]
  7. CLOZAPINE [Concomitant]
     Dosage: 100 mg, qd
     Route: 048
  8. CLOZAPINE [Concomitant]
     Dosage: 50 mg, qd
     Route: 048
  9. HALDOL [Concomitant]
  10. MONOCOR [Concomitant]
     Dosage: 5 mg, UNK
  11. SENOKOT [Concomitant]
  12. SYNTHROID [Concomitant]

REACTIONS (22)
  - Neuroleptic malignant syndrome [Recovered/Resolved]
  - Anaemia [Recovered/Resolved]
  - Blood fibrinogen increased [Recovered/Resolved]
  - Blood magnesium decreased [Recovered/Resolved]
  - Decreased appetite [Recovered/Resolved]
  - Diarrhoea [Recovered/Resolved]
  - Faecal incontinence [Recovered/Resolved]
  - Hypocalcaemia [Recovered/Resolved]
  - Hypokalaemia [Recovered/Resolved]
  - International normalised ratio increased [Recovered/Resolved]
  - Musculoskeletal stiffness [Recovered/Resolved]
  - Myalgia [Recovered/Resolved]
  - Nausea [Recovered/Resolved]
  - Prothrombin time prolonged [Recovered/Resolved]
  - Tachycardia [Recovered/Resolved]
  - Viral infection [Recovered/Resolved]
  - Vomiting [Recovered/Resolved]
  - Alanine aminotransferase increased [Recovered/Resolved]
  - Blood creatine phosphokinase increased [Recovered/Resolved]
  - Pyrexia [Recovered/Resolved]
  - Asthenia [Recovered/Resolved]
  - Fatigue [Recovered/Resolved]
